FAERS Safety Report 4928905-3 (Version None)
Quarter: 2006Q1

REPORT INFORMATION
  Report Type: 
  Country: None (occurrence: None)
  Receive Date: 20060228
  Receipt Date: 20060228
  Transmission Date: 20060701
  Serious: Yes (Hospitalization)
  Sender: FDA-Public Use
  Company Number: None

PATIENT
  Age: 56 Year
  Sex: Female

DRUGS (6)
  1. BEVACIZUMAB [Suspect]
     Indication: RECTAL CANCER
     Dosage: 566 MG Q 2 WEEKS IV
     Route: 042
     Dates: start: 20050815, end: 20050912
  2. OXALIPLATIN [Suspect]
     Indication: RECTAL CANCER
     Dosage: 61 MG WEEKLY X 5 TIMES IV
     Route: 042
     Dates: start: 20050815, end: 20050912
  3. FLUOROURACIL [Concomitant]
  4. ATENOLOL [Concomitant]
  5. LASIX [Concomitant]
  6. ALBUTEROL [Concomitant]

REACTIONS (2)
  - CHOLECYSTITIS ACUTE [None]
  - DEEP VEIN THROMBOSIS [None]
